FAERS Safety Report 21705228 (Version 1)
Quarter: 2022Q4

REPORT INFORMATION
  Report Type: Spontaneous
  Country: US (occurrence: None)
  Receive Date: 20221208
  Receipt Date: 20221208
  Transmission Date: 20230113
  Serious: Yes (Death)
  Sender: FDA-Public Use
  Company Number: None

PATIENT
  Age: 81 Year
  Sex: Female

DRUGS (1)
  1. DOFETILIDE [Suspect]
     Active Substance: DOFETILIDE
     Indication: Atrial fibrillation
     Dosage: OTHER STRENGTH : 125MCG;?FREQUENCY : TWICE A DAY;?
     Route: 048
     Dates: start: 20211208, end: 20220829

REACTIONS (1)
  - Death [None]

NARRATIVE: CASE EVENT DATE: 20220829
